FAERS Safety Report 9000019 (Version 2)
Quarter: 2013Q1

REPORT INFORMATION
  Report Type: Spontaneous
  Country: US (occurrence: US)
  Receive Date: 20130102
  Receipt Date: 20130131
  Transmission Date: 20140127
  Serious: Yes (Congenital Anomaly, Other)
  Sender: FDA-Public Use
  Company Number: US-PFIZER INC-2012329648

PATIENT
  Sex: Male

DRUGS (10)
  1. ZOLOFT [Suspect]
     Dosage: UNK
     Route: 064
     Dates: start: 200106, end: 200112
  2. PRENATAL VITAMINS [Concomitant]
     Dosage: UNK
     Route: 064
  3. TYLENOL [Concomitant]
     Dosage: UNK
     Route: 064
  4. DDAVP [Concomitant]
     Dosage: 0.2 MG, UNK
     Route: 064
  5. NAPROSYN [Concomitant]
     Dosage: UNK
     Route: 064
  6. FLEXERIL [Concomitant]
     Dosage: UNK
     Route: 064
  7. AMOXICILLIN [Concomitant]
     Dosage: UNK
     Route: 064
  8. PREDNISONE [Concomitant]
     Dosage: UNK
     Route: 064
  9. ZITHROMAX [Concomitant]
     Dosage: UNK
     Route: 064
  10. METRONIDAZOLE [Concomitant]
     Dosage: UNK
     Route: 064

REACTIONS (3)
  - Maternal exposure timing unspecified [Unknown]
  - Congenital anomaly [Unknown]
  - Limb asymmetry [Unknown]
